FAERS Safety Report 8767267 (Version 1)
Quarter: 2012Q4

REPORT INFORMATION
  Report Type: 
  Country: FR (occurrence: FR)
  Receive Date: 20120904
  Receipt Date: 20120904
  Transmission Date: 20130627
  Serious: Yes (Death)
  Sender: FDA-Public Use
  Company Number: FR-GLAXOSMITHKLINE-B0825622A

PATIENT
  Age: 54 Year
  Sex: Male

DRUGS (5)
  1. DEROXAT [Suspect]
     Indication: ANXIETY
     Dosage: 20MG per day
     Route: 048
     Dates: start: 2012
  2. COUMADIN [Suspect]
     Indication: ANTICOAGULANT THERAPY
     Route: 048
     Dates: start: 2012
  3. STILNOX [Suspect]
     Route: 048
     Dates: start: 2012
  4. LYSANXIA [Suspect]
     Route: 048
     Dates: start: 2012
  5. LEXOMIL [Suspect]
     Route: 048
     Dates: start: 2012

REACTIONS (3)
  - Cerebral haemorrhage [Fatal]
  - Fall [Not Recovered/Not Resolved]
  - Dizziness [Unknown]
